FAERS Safety Report 7673257-1 (Version None)
Quarter: 2011Q3

REPORT INFORMATION
  Report Type: 
  Country: None (occurrence: None)
  Receive Date: 20110804
  Receipt Date: 20110720
  Transmission Date: 20111222
  Serious: Yes (Life-Threatening, Hospitalization, Other)
  Sender: FDA-Public Use
  Company Number: 2011MA009191

PATIENT
  Age: 33 Year
  Sex: Female
  Weight: 5.6 kg

DRUGS (2)
  1. ADENOSINE [Suspect]
     Indication: SUPRAVENTRICULAR TACHYCARDIA
     Dosage: 0.2 MG/KG, 1X, IV
     Route: 042
  2. PROPRANOLOL HCL [Suspect]
     Indication: SUPRAVENTRICULAR TACHYCARDIA
     Dosage: 0.5 MG/KG;1X; IV
     Route: 042

REACTIONS (17)
  - BRADYCARDIA [None]
  - POST PROCEDURAL COMPLICATION [None]
  - VENTRICULAR DYSFUNCTION [None]
  - HYPOKINESIA [None]
  - STENOTROPHOMONAS INFECTION [None]
  - RENAL IMPAIRMENT [None]
  - ATRIAL FIBRILLATION [None]
  - HYPOTENSION [None]
  - HYPERKALAEMIA [None]
  - METABOLIC ACIDOSIS [None]
  - VENTRICULAR TACHYCARDIA [None]
  - PNEUMONIA [None]
  - SUPRAVENTRICULAR TACHYCARDIA [None]
  - DILATATION VENTRICULAR [None]
  - CIRCULATORY COLLAPSE [None]
  - HYPOXIA [None]
  - PERITONEAL DIALYSIS [None]
